FAERS Safety Report 24849690 (Version 2)
Quarter: 2025Q1

REPORT INFORMATION
  Report Type: Spontaneous
  Country: US (occurrence: US)
  Receive Date: 20250116
  Receipt Date: 20250122
  Transmission Date: 20250408
  Serious: No
  Sender: Harrow Health
  Company Number: US-IMP-2025000027

PATIENT
  Age: 58 Year
  Sex: Male

DRUGS (1)
  1. VEVYE [Suspect]
     Active Substance: CYCLOSPORINE
     Indication: Dry eye
     Route: 047

REACTIONS (4)
  - Eye irritation [Recovered/Resolved]
  - Drug effect less than expected [Unknown]
  - Product quality issue [Unknown]
  - Product use issue [Unknown]
